FAERS Safety Report 19073834 (Version 1)
Quarter: 2021Q1

REPORT INFORMATION
  Report Type: Spontaneous
  Country: US (occurrence: US)
  Receive Date: 20210330
  Receipt Date: 20210330
  Transmission Date: 20210420
  Serious: Yes (Hospitalization)
  Sender: FDA-Public Use
  Company Number: US-BAYER-2021-112403

PATIENT
  Age: 43 Year
  Sex: Male

DRUGS (1)
  1. ADEMPAS [Suspect]
     Active Substance: RIOCIGUAT
     Indication: PULMONARY HYPERTENSION
     Dosage: 1 MG, TID
     Route: 048
     Dates: start: 20210112, end: 20210305

REACTIONS (4)
  - Dyspnoea [None]
  - Hospitalisation [None]
  - Exercise tolerance decreased [None]
  - Quality of life decreased [None]

NARRATIVE: CASE EVENT DATE: 20210325
